FAERS Safety Report 5701641-1 (Version None)
Quarter: 2008Q2

REPORT INFORMATION
  Report Type: 
  Country: None (occurrence: None)
  Receive Date: 20080409
  Receipt Date: 20080409
  Transmission Date: 20081010
  Serious: Yes (Death)
  Sender: FDA-Public Use
  Company Number: None

PATIENT
  Sex: Male

DRUGS (5)
  1. REVLIMID [Suspect]
     Indication: MYELODYSPLASTIC SYNDROME
     Dosage: 10MG DAILY PO (DURATION: 1 TO 4 WEEKS)
     Route: 048
  2. PROCRIT [Concomitant]
  3. OMEPRAZOLE [Concomitant]
  4. FOLIC ACID [Concomitant]
  5. TEMAZEPAM [Concomitant]

REACTIONS (4)
  - FEBRILE NEUTROPENIA [None]
  - LUNG INFILTRATION [None]
  - RETINAL HAEMORRHAGE [None]
  - VISUAL DISTURBANCE [None]
